FAERS Safety Report 9771760 (Version 5)
Quarter: 2014Q4

REPORT INFORMATION
  Report Type: Report from Study
  Country: US (occurrence: US)
  Receive Date: 20131219
  Receipt Date: 20141226
  Transmission Date: 20150529
  Serious: Yes (Hospitalization)
  Sender: FDA-Public Use
  Company Number: US-BRISTOL-MYERS SQUIBB COMPANY-19864784

PATIENT
  Age: 44 Year
  Sex: Female

DRUGS (8)
  1. ALOXI [Concomitant]
     Active Substance: PALONOSETRON HYDROCHLORIDE
     Indication: PREMEDICATION
     Dosage: 250 MG, UNK
     Route: 065
     Dates: start: 20131024, end: 20131024
  2. DENOSUMAB [Concomitant]
     Active Substance: DENOSUMAB
     Indication: BONE DISORDER
     Dosage: AS REQUIRED
     Route: 058
     Dates: start: 20131024
  3. PACLITAXEL. [Suspect]
     Active Substance: PACLITAXEL
     Indication: BREAST CANCER
     Dosage: 175 MG/M2, UNK
     Route: 042
     Dates: start: 20131024
  4. BIMATOPROST. [Concomitant]
     Active Substance: BIMATOPROST
     Indication: HYPOTRICHOSIS
     Dosage: .03 %, PRN
     Route: 065
     Dates: start: 20130910
  5. PEPCID [Concomitant]
     Active Substance: FAMOTIDINE
     Indication: PREMEDICATION
     Dosage: 20 MG, UNK
     Route: 065
     Dates: start: 20131024, end: 20131024
  6. DECADRON [Concomitant]
     Active Substance: DEXAMETHASONE
     Indication: PREMEDICATION
     Dosage: 10 MG, UNK
     Route: 065
     Dates: start: 20131024, end: 20131024
  7. CARBOPLATIN. [Suspect]
     Active Substance: CARBOPLATIN
     Indication: BREAST CANCER
     Dosage: 1 DF, UNK
     Dates: start: 20131024
  8. BENADRYL [Concomitant]
     Active Substance: DIPHENHYDRAMINE HYDROCHLORIDE
     Indication: PREMEDICATION
     Dosage: 50 MG, UNK
     Route: 065
     Dates: start: 20131024, end: 20131024

REACTIONS (1)
  - Recall phenomenon [Recovered/Resolved]

NARRATIVE: CASE EVENT DATE: 20131026
